FAERS Safety Report 6654365-0 (Version None)
Quarter: 2010Q1

REPORT INFORMATION
  Report Type: 
  Country: None (occurrence: None)
  Receive Date: 20100326
  Receipt Date: 20100316
  Transmission Date: 20100710
  Serious: Yes (Hospitalization)
  Sender: FDA-Public Use
  Company Number: JP-PFIZER INC-2010029419

PATIENT
  Age: 46 Year
  Sex: Female
  Weight: 52.7 kg

DRUGS (9)
  1. CELECOX [Suspect]
     Indication: HEADACHE
     Dosage: 100 MG, 2X/DAY
     Route: 048
     Dates: start: 20100203, end: 20100216
  2. PROGRAF [Concomitant]
     Dosage: UNK
     Dates: start: 20090222
  3. CELLCEPT [Concomitant]
     Dosage: UNK
     Dates: start: 20090222
  4. MEDROL [Concomitant]
     Dosage: UNK
     Dates: start: 20090222
  5. AMLODIPINE MESILATE [Concomitant]
     Dosage: UNK
     Dates: start: 20090416
  6. ALLOPURINOL [Concomitant]
     Dosage: UNK
     Dates: start: 20100203
  7. FAMOTIDINE [Concomitant]
     Dosage: UNK
     Dates: start: 20090224
  8. ACTONEL [Concomitant]
     Dosage: UNK
     Dates: start: 20090301
  9. MERISLON [Concomitant]
     Dosage: UNK
     Dates: start: 20100210

REACTIONS (1)
  - LOSS OF CONSCIOUSNESS [None]
